FAERS Safety Report 8381955-X (Version None)
Quarter: 2012Q2

REPORT INFORMATION
  Report Type: 
  Country: None (occurrence: None)
  Receive Date: 20120522
  Receipt Date: 20120522
  Transmission Date: 20120825
  Serious: Yes (Death, Life-Threatening, Hospitalization, Disabling, Other)
  Sender: FDA-Public Use
  Company Number: None

PATIENT
  Age: 64 Year
  Sex: Male
  Weight: 90.7194 kg

DRUGS (1)
  1. CIPRO [Suspect]
     Indication: BRONCHITIS
     Dates: start: 20100301, end: 20100310

REACTIONS (6)
  - PHARYNGEAL HAEMORRHAGE [None]
  - ASTHENIA [None]
  - DYSPNOEA [None]
  - TENDON RUPTURE [None]
  - GAIT DISTURBANCE [None]
  - INTRACARDIAC THROMBUS [None]
